FAERS Safety Report 13770679 (Version 1)
Quarter: 2017Q3

REPORT INFORMATION
  Report Type: Spontaneous
  Country: US (occurrence: US)
  Receive Date: 20170719
  Receipt Date: 20170719
  Transmission Date: 20171127
  Serious: No
  Sender: FDA-Public Use
  Company Number: US-BAYER-2017-134892

PATIENT
  Age: 20 Year
  Sex: Female

DRUGS (1)
  1. GIANVI [Suspect]
     Active Substance: DROSPIRENONE\ETHINYL ESTRADIOL
     Indication: CONTRACEPTION
     Dosage: UNK
     Route: 048
     Dates: start: 2015

REACTIONS (4)
  - Parosmia [None]
  - Feeling abnormal [None]
  - Appetite disorder [None]
  - Nausea [None]

NARRATIVE: CASE EVENT DATE: 2017
